FAERS Safety Report 21396388 (Version 1)
Quarter: 2022Q3

REPORT INFORMATION
  Report Type: Spontaneous
  Country: None (occurrence: ES)
  Receive Date: 20220930
  Receipt Date: 20220930
  Transmission Date: 20221027
  Serious: Yes (Hospitalization, Other)
  Sender: FDA-Public Use
  Company Number: ES-B.Braun Medical Inc.-2133351

PATIENT
  Age: 3 Year
  Sex: Female

DRUGS (3)
  1. METRONIDAZOLE [Suspect]
     Active Substance: METRONIDAZOLE
  2. CLOXACILLIN [Suspect]
     Active Substance: CLOXACILLIN
  3. CEFOTAXIME [Suspect]
     Active Substance: CEFOTAXIME SODIUM

REACTIONS (4)
  - Product administered to patient of inappropriate age [Recovering/Resolving]
  - Pancytopenia [Recovering/Resolving]
  - Pyrexia [Recovering/Resolving]
  - Hypertransaminasaemia [Recovering/Resolving]
